FAERS Safety Report 7757736-4 (Version None)
Quarter: 2011Q3

REPORT INFORMATION
  Report Type: 
  Country: None (occurrence: None)
  Receive Date: 20110916
  Receipt Date: 20101116
  Transmission Date: 20111222
  Serious: No
  Sender: FDA-Public Use
  Company Number: US-ALLERGAN-1014845US

PATIENT
  Age: 53 Year
  Sex: Female

DRUGS (1)
  1. ACUVAIL [Suspect]
     Indication: CHEMICAL INJURY
     Dosage: 1 GTT, TID
     Route: 047
     Dates: start: 20101101, end: 20101112

REACTIONS (1)
  - MUSCLE SPASMS [None]
